FAERS Safety Report 10553192 (Version 4)
Quarter: 2014Q4

REPORT INFORMATION
  Report Type: Spontaneous
  Country: IT (occurrence: IT)
  Receive Date: 20141030
  Receipt Date: 20141114
  Transmission Date: 20150529
  Serious: Yes (Other)
  Sender: FDA-Public Use
  Company Number: IT-ROCHE-1482370

PATIENT
  Age: 66 Year
  Sex: Female

DRUGS (6)
  1. ROACTEMRA [Suspect]
     Active Substance: TOCILIZUMAB
     Indication: RHEUMATOID ARTHRITIS
     Route: 042
     Dates: start: 20110622
  2. SIVASTIN [Concomitant]
     Active Substance: SIMVASTATIN
  3. LANSOPRAZOLE. [Concomitant]
     Active Substance: LANSOPRAZOLE
  4. ENAPREN [Concomitant]
     Active Substance: ENALAPRIL MALEATE
  5. PREDNISONE. [Concomitant]
     Active Substance: PREDNISONE
  6. ARAVA [Concomitant]
     Active Substance: LEFLUNOMIDE

REACTIONS (4)
  - Polycythaemia [Unknown]
  - Hypertensive crisis [Recovered/Resolved]
  - Thrombocytosis [Unknown]
  - Epistaxis [Recovered/Resolved]

NARRATIVE: CASE EVENT DATE: 20140910
